FAERS Safety Report 17027137 (Version 3)
Quarter: 2019Q4

REPORT INFORMATION
  Report Type: Spontaneous
  Country: US (occurrence: US)
  Receive Date: 20191113
  Receipt Date: 20191210
  Transmission Date: 20200122
  Serious: Yes (Hospitalization, Other)
  Sender: FDA-Public Use
  Company Number: US-GLAXOSMITHKLINE-US2019AMR203778

PATIENT
  Age: 75 Year
  Sex: Female

DRUGS (1)
  1. TRELEGY ELLIPTA [Suspect]
     Active Substance: FLUTICASONE FUROATE\UMECLIDINIUM BROMIDE\VILANTEROL TRIFENATATE
     Indication: PRODUCT USED FOR UNKNOWN INDICATION
     Dosage: 100/62.5/25 MCG,UNK
     Route: 065
     Dates: start: 2018

REACTIONS (5)
  - Fall [Unknown]
  - Spinal fracture [Unknown]
  - Product dose omission [Unknown]
  - Surgery [Unknown]
  - Product complaint [Unknown]

NARRATIVE: CASE EVENT DATE: 20191019
